FAERS Safety Report 23712489 (Version 1)
Quarter: 2024Q2

REPORT INFORMATION
  Report Type: Spontaneous
  Country: AE (occurrence: AE)
  Receive Date: 20240405
  Receipt Date: 20240405
  Transmission Date: 20240715
  Serious: Yes (Hospitalization)
  Sender: FDA-Public Use
  Company Number: AE-NOVITIUMPHARMA-2024AENVP00410

PATIENT
  Age: 56 Year
  Sex: Male

DRUGS (3)
  1. LEVOFLOXACIN [Suspect]
     Active Substance: LEVOFLOXACIN
     Indication: Staphylococcal infection
  2. MEROPENEM [Concomitant]
     Active Substance: MEROPENEM
     Indication: Staphylococcal infection
  3. TEICOPLANIN [Concomitant]
     Active Substance: TEICOPLANIN
     Indication: Staphylococcal infection

REACTIONS (1)
  - Drug ineffective [Unknown]
